FAERS Safety Report 18096236 (Version 1)
Quarter: 2020Q3

REPORT INFORMATION
  Report Type: Spontaneous
  Country: ES (occurrence: ES)
  Receive Date: 20200731
  Receipt Date: 20200731
  Transmission Date: 20201103
  Serious: Yes (Hospitalization, Other)
  Sender: FDA-Public Use
  Company Number: ES-AMGEN-ESPSP2020120985

PATIENT
  Age: 58 Year
  Sex: Female

DRUGS (4)
  1. AMIKACIN. [Concomitant]
     Active Substance: AMIKACIN
     Route: 042
  2. PARACETAMOL [Concomitant]
     Active Substance: ACETAMINOPHEN
     Indication: ARTHRALGIA
  3. FILGRASTIM [Suspect]
     Active Substance: FILGRASTIM
     Indication: NEUTROPENIA
     Dosage: 300 MICROGRAM, QD
     Route: 058
  4. MEROPENEM. [Concomitant]
     Active Substance: MEROPENEM
     Route: 042

REACTIONS (6)
  - Blepharitis [Recovered/Resolved]
  - Anaemia [Recovered/Resolved]
  - Thrombocytopenia [Recovered/Resolved]
  - Off label use [Unknown]
  - Pyrexia [Recovered/Resolved]
  - Drug ineffective [Unknown]
